FAERS Safety Report 4684378-X (Version None)
Quarter: 2005Q2

REPORT INFORMATION
  Report Type: 
  Country: None (occurrence: None)
  Receive Date: 20050531
  Receipt Date: 20041015
  Transmission Date: 20051028
  Serious: Yes (Hospitalization, Other)
  Sender: FDA-Public Use
  Company Number: USA041081236

PATIENT
  Sex: Male

DRUGS (1)
  1. ZYPREXA [Suspect]
     Dosage: 80 MG/1 DAY

REACTIONS (3)
  - AUTISM [None]
  - CONVULSION [None]
  - PRESCRIBED OVERDOSE [None]
